FAERS Safety Report 8991007 (Version 1)
Quarter: 2012Q4

REPORT INFORMATION
  Report Type: Spontaneous
  Country: US (occurrence: None)
  Receive Date: 20121227
  Receipt Date: 20121227
  Transmission Date: 20130627
  Serious: No
  Sender: FDA-Public Use
  Company Number: None

PATIENT

DRUGS (1)
  1. ETOMIDATE [Suspect]
     Route: 040
     Dates: start: 20121225, end: 20121225

REACTIONS (2)
  - No therapeutic response [None]
  - Product quality issue [None]
